FAERS Safety Report 4755549-9 (Version None)
Quarter: 2005Q3

REPORT INFORMATION
  Report Type: 
  Country: None (occurrence: None)
  Receive Date: 20050830
  Receipt Date: 20050512
  Transmission Date: 20060218
  Serious: Yes (Other)
  Sender: FDA-Public Use
  Company Number: US-BRISTOL-MYERS SQUIBB COMPANY-12966586

PATIENT
  Age: 60 Year
  Sex: Male
  Weight: 104 kg

DRUGS (13)
  1. ABILIFY [Suspect]
     Dosage: DOSE INCREASED FROM 10 MG/DAY
     Route: 048
  2. BETHANECHOL [Concomitant]
  3. FLOMAX [Concomitant]
  4. HUMULIN 70/30 [Concomitant]
  5. HUMULIN 70/30 [Concomitant]
  6. METFORMIN HCL [Concomitant]
  7. GLIPIZIDE [Concomitant]
  8. TRICOR [Concomitant]
  9. XANAX [Concomitant]
     Dosage: .25 MG 1 TO 4 TIMES DAILY
  10. BENZATROPINE [Concomitant]
     Dosage: 1-2 PER DAY
  11. IMIPRAMINE [Concomitant]
  12. AVANDIA [Concomitant]
  13. WELLBUTRIN [Concomitant]

REACTIONS (2)
  - DEPRESSION [None]
  - EMOTIONAL DISTRESS [None]
